FAERS Safety Report 6699742-7 (Version None)
Quarter: 2010Q2

REPORT INFORMATION
  Report Type: 
  Country: None (occurrence: None)
  Receive Date: 20100427
  Receipt Date: 20100427
  Transmission Date: 20101027
  Serious: Yes (Life-Threatening)
  Sender: FDA-Public Use
  Company Number: None

PATIENT
  Sex: Male
  Weight: 87.6349 kg

DRUGS (8)
  1. REMICADE [Suspect]
     Indication: CROHN'S DISEASE
     Dosage: 5 MG/KG IV
     Route: 042
     Dates: start: 20060101
  2. FISH OIL [Concomitant]
  3. M.V.I. [Concomitant]
  4. ZYRTEC [Concomitant]
  5. FLAX SEED [Concomitant]
  6. IRON [Concomitant]
  7. PAXIL [Concomitant]
  8. EFFEXOR [Concomitant]

REACTIONS (1)
  - NEOPLASM MALIGNANT [None]
